FAERS Safety Report 6982100-5 (Version None)
Quarter: 2010Q3

REPORT INFORMATION
  Report Type: 
  Country: None (occurrence: None)
  Receive Date: 20100914
  Receipt Date: 20091214
  Transmission Date: 20110219
  Serious: No
  Sender: FDA-Public Use
  Company Number: US-PFIZER INC-2009278247

PATIENT
  Age: 74 Year
  Sex: Female
  Weight: 68.038 kg

DRUGS (7)
  1. LYRICA [Suspect]
     Indication: NERVE COMPRESSION
     Dosage: 75 MG, 3X/DAY
     Route: 048
     Dates: start: 20090925
  2. LOTREL [Concomitant]
     Indication: HYPERTENSION
     Dosage: UNK
     Route: 048
  3. ATENOLOL [Concomitant]
     Indication: HYPERTENSION
     Dosage: 50 MG, UNK
     Route: 048
  4. ACETYLSALICYLIC ACID [Concomitant]
     Dosage: 81 MG, UNK
     Route: 048
  5. LEVOTHYROXINE SODIUM [Concomitant]
     Indication: HYPOTHYROIDISM
     Dosage: 50 UG, UNK
     Route: 048
  6. POTASSIUM CITRATE [Concomitant]
     Indication: NEPHROLITHIASIS
     Dosage: 10 MEQ, UNK
     Route: 048
  7. LIPITOR [Concomitant]
     Indication: BLOOD CHOLESTEROL INCREASED
     Dosage: UNK
     Route: 048
     Dates: start: 20040101

REACTIONS (6)
  - CONSTIPATION [None]
  - DIZZINESS [None]
  - GAIT DISTURBANCE [None]
  - OEDEMA PERIPHERAL [None]
  - SOMNOLENCE [None]
  - VISION BLURRED [None]
